FAERS Safety Report 8149634 (Version 3)
Quarter: 2014Q1

REPORT INFORMATION
  Report Type: Spontaneous
  Country: US (occurrence: US)
  Receive Date: 20110922
  Receipt Date: 20140311
  Transmission Date: 20141002
  Serious: Yes (Hospitalization, Other)
  Sender: FDA-Public Use
  Company Number: US-ASTRAZENECA-2011SE15838

PATIENT
  Age: 60 Year
  Sex: Female
  Weight: 68.5 kg

DRUGS (23)
  1. SEROQUEL [Suspect]
     Indication: BIPOLAR I DISORDER
     Route: 048
     Dates: start: 201006, end: 201101
  2. SEROQUEL [Suspect]
     Indication: BIPOLAR I DISORDER
     Route: 048
     Dates: start: 201006, end: 201101
  3. SEROQUEL [Suspect]
     Indication: BIPOLAR I DISORDER
     Route: 048
     Dates: start: 201101
  4. SEROQUEL [Suspect]
     Indication: BIPOLAR I DISORDER
     Route: 048
  5. SEROQUEL [Suspect]
     Indication: BIPOLAR I DISORDER
     Route: 048
  6. SEROQUEL [Suspect]
     Indication: BIPOLAR I DISORDER
     Route: 048
     Dates: start: 2010, end: 201402
  7. SEROQUEL [Suspect]
     Indication: BIPOLAR I DISORDER
     Route: 048
     Dates: start: 201402
  8. SEROQUEL [Suspect]
     Indication: BIPOLAR I DISORDER
     Route: 048
     Dates: start: 201402
  9. ZOLOFT [Concomitant]
     Indication: BIPOLAR DISORDER
     Dates: start: 2010
  10. ZOLOFT [Concomitant]
     Indication: DEPRESSION
     Dates: start: 2010
  11. THYROXIN [Concomitant]
     Indication: THYROID DISORDER
  12. THYROXIN [Concomitant]
     Indication: THYROID DISORDER
  13. DOXYCYCLINE [Concomitant]
     Indication: ACNE
  14. DOXYCYCLINE [Concomitant]
     Indication: ADVERSE EVENT
  15. VITAMIN PILL [Concomitant]
     Indication: NUTRITIONAL SUPPLEMENTATION
  16. LIPOIC ACID [Concomitant]
     Indication: NUTRITIONAL SUPPLEMENTATION
  17. VITAMIN D [Concomitant]
     Indication: NUTRITIONAL SUPPLEMENTATION
  18. OMEGA 3 FISH OIL [Concomitant]
     Indication: SUPPLEMENTATION THERAPY
  19. CHOLESTREOL MEDICATION [Concomitant]
     Indication: BLOOD CHOLESTEROL ABNORMAL
  20. PROGESTERONE WITH ESTROGEN [Concomitant]
     Indication: MENOPAUSE
     Dates: start: 2013
  21. PRAVASTATIN [Concomitant]
     Indication: BLOOD CHOLESTEROL INCREASED
  22. MINOXIDIL [Concomitant]
     Indication: ALOPECIA
  23. MEDICATION FOR MOTION SICKNESS [Concomitant]
     Indication: MOTION SICKNESS

REACTIONS (22)
  - Suicidal ideation [Unknown]
  - Alopecia [Unknown]
  - Bipolar disorder [Unknown]
  - Crying [Unknown]
  - Motion sickness [Unknown]
  - Depression [Unknown]
  - Mania [Unknown]
  - General physical health deterioration [Unknown]
  - Hypotrichosis [Unknown]
  - Dandruff [Unknown]
  - Borderline personality disorder [Unknown]
  - Attention deficit/hyperactivity disorder [Not Recovered/Not Resolved]
  - Metabolic disorder [Unknown]
  - Dizziness [Not Recovered/Not Resolved]
  - Somnolence [Not Recovered/Not Resolved]
  - Blood cholesterol increased [Unknown]
  - Weight increased [Not Recovered/Not Resolved]
  - Constipation [Unknown]
  - Dyspepsia [Unknown]
  - Intentional drug misuse [Unknown]
  - Intentional drug misuse [Unknown]
  - Drug dose omission [Not Recovered/Not Resolved]
